FAERS Safety Report 7931684-9 (Version None)
Quarter: 2011Q4

REPORT INFORMATION
  Report Type: 
  Country: None (occurrence: None)
  Receive Date: 20111121
  Receipt Date: 20111115
  Transmission Date: 20120403
  Serious: Yes (Hospitalization)
  Sender: FDA-Public Use
  Company Number: US-CELGENEUS-163-21660-11112220

PATIENT
  Age: 52 Year
  Sex: Female

DRUGS (5)
  1. PEGFILGRASTIM [Suspect]
     Indication: BREAST CANCER
     Route: 058
     Dates: start: 20110202
  2. DOXORUBICIN HCL [Suspect]
     Indication: BREAST CANCER
     Dosage: 60 MILLIGRAM/SQ. METER
     Route: 041
     Dates: start: 20090202
  3. FILGRASTIM [Suspect]
     Indication: BREAST CANCER
     Dosage: 5 MICROGRAM
     Route: 058
     Dates: start: 20090202
  4. CYCLOPHOSPHAMIDE [Suspect]
     Indication: BREAST CANCER
     Dosage: 600 MILLIGRAM/SQ. METER
     Route: 041
     Dates: start: 20090202
  5. ABRAXANE [Suspect]
     Indication: BREAST CANCER
     Route: 041
     Dates: start: 20090202

REACTIONS (3)
  - FATIGUE [None]
  - MUCOSAL INFLAMMATION [None]
  - STOMATITIS [None]
